FAERS Safety Report 7214974-7 (Version None)
Quarter: 2011Q1

REPORT INFORMATION
  Report Type: 
  Country: None (occurrence: None)
  Receive Date: 20110107
  Receipt Date: 20100603
  Transmission Date: 20110831
  Serious: No
  Sender: FDA-Public Use
  Company Number: A0865592A

PATIENT
  Age: 67 Year
  Sex: Male

DRUGS (3)
  1. NAVANE [Concomitant]
  2. LOVAZA [Suspect]
     Dosage: 3G PER DAY
     Route: 048
     Dates: start: 20100401
  3. TRICOR [Concomitant]

REACTIONS (1)
  - WEIGHT INCREASED [None]
